FAERS Safety Report 8354111-9 (Version None)
Quarter: 2012Q2

REPORT INFORMATION
  Report Type: 
  Country: None (occurrence: None)
  Receive Date: 20120511
  Receipt Date: 20120430
  Transmission Date: 20120825
  Serious: No
  Sender: FDA-Public Use
  Company Number: US-BAYER-2012-045336

PATIENT

DRUGS (3)
  1. LOSANGES [Concomitant]
  2. CHLORASEPTIC [Concomitant]
  3. NAPROXEN SODIUM [Suspect]
     Dosage: 6 DF, UNK
     Route: 048

REACTIONS (1)
  - CONDITION AGGRAVATED [None]
